FAERS Safety Report 18079748 (Version 2)
Quarter: 2021Q2

REPORT INFORMATION
  Report Type: Spontaneous
  Country: TR (occurrence: TR)
  Receive Date: 20200728
  Receipt Date: 20210629
  Transmission Date: 20210717
  Serious: Yes (Life-Threatening, Hospitalization)
  Sender: FDA-Public Use
  Company Number: TR-TEVA-2020-TR-1805866

PATIENT
  Age: 15 Year
  Sex: Female

DRUGS (14)
  1. ADRENALINE [Suspect]
     Active Substance: EPINEPHRINE
     Indication: TOXICITY TO VARIOUS AGENTS
     Dosage: 0.1 MCG/KG/MIN
     Route: 041
  2. SODIUM CHLORIDE. [Suspect]
     Active Substance: SODIUM CHLORIDE
     Indication: TOXICITY TO VARIOUS AGENTS
     Route: 065
  3. GLUCOSE [Suspect]
     Active Substance: DEXTROSE
     Indication: TOXICITY TO VARIOUS AGENTS
     Dosage: 8 MG/KG/MIN
     Route: 065
  4. CRYSTALLISED INSULIN [Suspect]
     Active Substance: INSULIN PORK\INSULIN PURIFIED PORK
     Indication: TOXICITY TO VARIOUS AGENTS
     Dosage: 0.1 UNIT/KG/H
     Route: 050
  5. DOBUTAMINE [Suspect]
     Active Substance: DOBUTAMINE HYDROCHLORIDE
     Indication: TOXICITY TO VARIOUS AGENTS
     Dosage: 10MCG/KG/MIN
     Route: 065
  6. HEPARIN [Concomitant]
     Active Substance: HEPARIN SODIUM
     Dosage: MAINTENANCE DOSE: 10 UNIT/KG/H
     Route: 041
  7. ADRENALINE [Suspect]
     Active Substance: EPINEPHRINE
     Dosage: WAS INCREASED UP TO 0.3 MCG/KG/MIN
     Route: 041
  8. GLUCAGON. [Suspect]
     Active Substance: GLUCAGON
     Indication: TOXICITY TO VARIOUS AGENTS
     Dosage: TWICE
     Route: 030
  9. VERAPAMIL [Suspect]
     Active Substance: VERAPAMIL HYDROCHLORIDE
     Indication: SUICIDE ATTEMPT
     Dosage: INGESTING 8 TABLETS OF VERAPAMIL (EACH TABLET CONTAINING 240MG OF VERAPAMIL)
     Route: 048
  10. ADRENALINE [Suspect]
     Active Substance: EPINEPHRINE
     Dosage: WAS REDUCED UP TO 0.2 MCG/KG/MIN
     Route: 041
  11. CALCIUM GLUCONATE. [Suspect]
     Active Substance: CALCIUM GLUCONATE
     Indication: TOXICITY TO VARIOUS AGENTS
     Dosage: 90 ML DAILY;
     Route: 065
  12. NORADRENALINE [Suspect]
     Active Substance: NOREPINEPHRINE
     Indication: TOXICITY TO VARIOUS AGENTS
     Dosage: INCREASED UP TO 0.3 MCG/KG/MIN
     Route: 050
  13. NORADRENALINE [Suspect]
     Active Substance: NOREPINEPHRINE
     Dosage: REDUCED UP TO 0.2 MCG/KG/MIN
     Route: 050
  14. HEPARIN [Concomitant]
     Active Substance: HEPARIN SODIUM
     Indication: ANTICOAGULANT THERAPY
     Dosage: LOADING DOSE: 50 UNIT/KG
     Route: 041

REACTIONS (12)
  - Intentional overdose [Recovered/Resolved]
  - Suicide attempt [Recovered/Resolved]
  - Drug ineffective [Unknown]
  - Somnolence [Recovered/Resolved]
  - Pleural effusion [Recovered/Resolved]
  - Respiratory distress [Recovered/Resolved]
  - Lactic acidosis [Recovered/Resolved]
  - Hypotension [Recovered/Resolved]
  - Toxicity to various agents [Recovered/Resolved]
  - Atrioventricular block first degree [Recovered/Resolved]
  - Bradycardia [Recovered/Resolved]
  - Electrocardiogram QT prolonged [Recovered/Resolved]
